FAERS Safety Report 8981112 (Version 1)
Quarter: 2012Q4

REPORT INFORMATION
  Report Type: 
  Country: DE (occurrence: DE)
  Receive Date: 20121221
  Receipt Date: 20121221
  Transmission Date: 20130627
  Serious: Yes (Hospitalization, Other)
  Sender: FDA-Public Use
  Company Number: DE-ABBOTT-12P-062-1006616-00

PATIENT
  Sex: Female

DRUGS (6)
  1. HUMIRA [Suspect]
     Indication: PSORIASIS
     Route: 058
  2. PANTOPRAZOL [Concomitant]
     Indication: PRODUCT USED FOR UNKNOWN INDICATION
  3. PERCHLORATES [Concomitant]
     Indication: HYPERTHYROIDISM
     Route: 048
     Dates: start: 20121009
  4. THIAMAZOL [Concomitant]
     Indication: HYPERTHYROIDISM
     Route: 048
     Dates: start: 20121009
  5. METOCLOPRAMIDE [Concomitant]
     Indication: VOMITING
     Dosage: as needed
     Route: 048
  6. PARACETAMOL [Concomitant]
     Indication: PAIN
     Dosage: as needed

REACTIONS (8)
  - Small intestine carcinoma metastatic [Unknown]
  - Hepatic cancer [Unknown]
  - Gastritis [Unknown]
  - Headache [Unknown]
  - Hyperthyroidism [Unknown]
  - Goitre [Unknown]
  - Infection [Recovered/Resolved]
  - Vomiting [Unknown]
